FAERS Safety Report 23974205 (Version 1)
Quarter: 2024Q2

REPORT INFORMATION
  Report Type: Spontaneous
  Country: US (occurrence: US)
  Receive Date: 20240614
  Receipt Date: 20240614
  Transmission Date: 20240716
  Serious: Yes (Hospitalization, Other)
  Sender: FDA-Public Use
  Company Number: US-BRISTOL-MYERS SQUIBB COMPANY-2024-092516

PATIENT
  Age: 81 Year
  Sex: Female
  Weight: 51.71 kg

DRUGS (2)
  1. POMALYST [Suspect]
     Active Substance: POMALIDOMIDE
     Indication: Plasma cell myeloma refractory
     Route: 048
     Dates: start: 20220929
  2. POMALYST [Suspect]
     Active Substance: POMALIDOMIDE
     Dates: start: 20240606

REACTIONS (1)
  - Pneumonia [Recovered/Resolved]
